FAERS Safety Report 6079929-7 (Version None)
Quarter: 2009Q1

REPORT INFORMATION
  Report Type: 
  Country: None (occurrence: None)
  Receive Date: 20090217
  Receipt Date: 20090210
  Transmission Date: 20090719
  Serious: Yes (Hospitalization)
  Sender: FDA-Public Use
  Company Number: JP-ASTRAZENECA-2009SE00788

PATIENT
  Age: 41 Year
  Sex: Female

DRUGS (1)
  1. BLOPRESS [Suspect]
     Route: 048

REACTIONS (1)
  - PNEUMONIA CYTOMEGALOVIRAL [None]
